FAERS Safety Report 21553930 (Version 1)
Quarter: 2022Q4

REPORT INFORMATION
  Report Type: Spontaneous
  Country: ES (occurrence: ES)
  Receive Date: 20221104
  Receipt Date: 20221104
  Transmission Date: 20230113
  Serious: Yes (Other)
  Sender: FDA-Public Use
  Company Number: None

PATIENT
  Age: 60 Year
  Sex: Female

DRUGS (1)
  1. FINGOLIMOD [Suspect]
     Active Substance: FINGOLIMOD
     Indication: Multiple sclerosis
     Dosage: FINGOLIMOD (8347A), UNIT DOSE : 0.25 MG, FREQUENCY TIME : 2 DAYS, DURATION : 276 DAYS
     Route: 065
     Dates: start: 20211231, end: 20221003

REACTIONS (2)
  - Headache [Unknown]
  - Hyperkalaemia [Unknown]

NARRATIVE: CASE EVENT DATE: 20221003
